FAERS Safety Report 23435286 (Version 1)
Quarter: 2024Q1

REPORT INFORMATION
  Report Type: Report from Study
  Country: US (occurrence: US)
  Receive Date: 20240123
  Receipt Date: 20240123
  Transmission Date: 20240409
  Serious: Yes (Other)
  Sender: FDA-Public Use
  Company Number: US-ABBVIE-5596870

PATIENT
  Sex: Male

DRUGS (1)
  1. RINVOQ [Suspect]
     Active Substance: UPADACITINIB
     Indication: Dermatitis atopic
     Route: 048
     Dates: start: 20231113

REACTIONS (4)
  - Muscle operation [Unknown]
  - Rotator cuff repair [Unknown]
  - Eczema [Unknown]
  - Fall [Unknown]

NARRATIVE: CASE EVENT DATE: 20230101
